FAERS Safety Report 24691456 (Version 1)
Quarter: 2024Q4

REPORT INFORMATION
  Report Type: Spontaneous
  Country: US (occurrence: None)
  Receive Date: 20241203
  Receipt Date: 20241203
  Transmission Date: 20250115
  Serious: Yes (Other)
  Sender: Public
  Company Number: None

PATIENT
  Age: 64 Year
  Sex: Female
  Weight: 76.05 kg

DRUGS (5)
  1. QSYMIA [Suspect]
     Active Substance: PHENTERMINE HYDROCHLORIDE\TOPIRAMATE
     Indication: Weight decreased
     Dosage: 1 CPSULE ORL
     Route: 048
     Dates: start: 20240714, end: 20241203
  2. MAGNESIUM [Concomitant]
     Active Substance: MAGNESIUM
  3. Malox [Concomitant]
  4. XIGDUO XR [Concomitant]
     Active Substance: DAPAGLIFLOZIN PROPANEDIOL\METFORMIN HYDROCHLORIDE
  5. METFORMIN [Concomitant]
     Active Substance: METFORMIN HYDROCHLORIDE

REACTIONS (11)
  - Insurance issue [None]
  - Product use issue [None]
  - Dizziness [None]
  - Influenza like illness [None]
  - Vomiting [None]
  - Fall [None]
  - Gait disturbance [None]
  - Dysstasia [None]
  - Fear [None]
  - Therapy cessation [None]
  - Constipation [None]

NARRATIVE: CASE EVENT DATE: 20241201
